FAERS Safety Report 4844610-6 (Version None)
Quarter: 2005Q4

REPORT INFORMATION
  Report Type: 
  Country: None (occurrence: None)
  Receive Date: 20051125
  Receipt Date: 20051115
  Transmission Date: 20060501
  Serious: Yes (Other)
  Sender: FDA-Public Use
  Company Number: 2005157059

PATIENT
  Age: 71 Year
  Sex: Male

DRUGS (10)
  1. PREDNISONE [Suspect]
     Indication: CHRONIC OBSTRUCTIVE PULMONARY DISEASE
     Dosage: (40 MG), ORAL
     Route: 048
     Dates: start: 20050817
  2. MOXIFLOXACIN HCL [Suspect]
     Indication: CHRONIC OBSTRUCTIVE PULMONARY DISEASE
     Dosage: (400 MG), ORAL
     Route: 048
     Dates: start: 20050817, end: 20050817
  3. MORPHINE SULFATE (MORPHINE SULFATE0 [Concomitant]
  4. ENALAPRIL MALEATE [Concomitant]
  5. DILTIAZEM [Concomitant]
  6. DOCUSATE (DOCUSATE) [Concomitant]
  7. AMITRIPTYLINE HCL [Concomitant]
  8. METOCLOPRAMIDE [Concomitant]
  9. SIMVASTATIN [Concomitant]
  10. SENNA (SENNA) [Concomitant]

REACTIONS (2)
  - ERYTHEMA [None]
  - PRURITUS [None]
